FAERS Safety Report 9046350 (Version 1)
Quarter: 2013Q1

REPORT INFORMATION
  Report Type: Spontaneous
  Country: US (occurrence: None)
  Receive Date: 20130128
  Receipt Date: 20130128
  Transmission Date: 20140127
  Serious: Yes (Hospitalization)
  Sender: FDA-Public Use
  Company Number: None

PATIENT
  Age: 61 Year
  Sex: Male
  Weight: 101.4 kg

DRUGS (1)
  1. FLUOXETINE [Suspect]
     Indication: DEPRESSION
     Dosage: 40 MG  AM  PO?10/03/2012  THRU  11/02/2012
     Route: 048
     Dates: start: 20121003, end: 20121102

REACTIONS (2)
  - Anaphylactic reaction [None]
  - Rash [None]
